FAERS Safety Report 5371946-5 (Version None)
Quarter: 2007Q2

REPORT INFORMATION
  Report Type: 
  Country: None (occurrence: None)
  Receive Date: 20070625
  Receipt Date: 20070613
  Transmission Date: 20071010
  Serious: Yes (Hospitalization)
  Sender: FDA-Public Use
  Company Number: 100#08#2007-02222

PATIENT
  Age: 55 Year
  Sex: Female

DRUGS (4)
  1. PHENYTOIN [Suspect]
     Indication: EPILEPSY
  2. PHENOBARBITAL TAB [Suspect]
     Indication: EPILEPSY
  3. CALCIUM CARBONATE [Concomitant]
  4. ERGOCALCIFEROL [Concomitant]

REACTIONS (7)
  - FALL [None]
  - FEMORAL NECK FRACTURE [None]
  - IMPAIRED SELF-CARE [None]
  - MENTAL DISORDER [None]
  - MULTIPLE FRACTURES [None]
  - ULNA FRACTURE [None]
  - VITAMIN D DEFICIENCY [None]
